FAERS Safety Report 4781141-6 (Version None)
Quarter: 2005Q3

REPORT INFORMATION
  Report Type: 
  Country: None (occurrence: None)
  Receive Date: 20050926
  Receipt Date: 20050914
  Transmission Date: 20060218
  Serious: Yes (Hospitalization, Other)
  Sender: FDA-Public Use
  Company Number: 2005129783

PATIENT
  Age: 81 Year
  Sex: Female

DRUGS (6)
  1. METHYLPREDNISOLONE [Suspect]
     Indication: PNEUMONIA
     Dates: start: 20040101
  2. METHYLPREDNISOLONE [Suspect]
     Indication: STATUS ASTHMATICUS
     Dates: start: 20040101
  3. PREDNISONE [Suspect]
     Indication: ASTHMA
     Dosage: ORAL
     Route: 048
  4. FLUTICASONE PROPIONATE [Suspect]
     Indication: ASTHMA
     Dosage: ORAL
     Route: 048
  5. PANIPENEM (PANIPENEM) [Concomitant]
  6. MINOCYCLINE HCL [Concomitant]

REACTIONS (8)
  - ANOREXIA [None]
  - BACTERIA SPUTUM IDENTIFIED [None]
  - DYSPNOEA [None]
  - INFLUENZA [None]
  - LUNG DISORDER [None]
  - LUNG INFILTRATION [None]
  - NOCARDIOSIS [None]
  - PNEUMONIA [None]
